FAERS Safety Report 15336400 (Version 2)
Quarter: 2018Q3

REPORT INFORMATION
  Report Type: Spontaneous
  Country: BR (occurrence: BR)
  Receive Date: 20180830
  Receipt Date: 20180912
  Transmission Date: 20181010
  Serious: Yes (Other)
  Sender: FDA-Public Use
  Company Number: PHHY2018BR074827

PATIENT
  Sex: Male
  Weight: 46 kg

DRUGS (1)
  1. RITALINA [Suspect]
     Active Substance: METHYLPHENIDATE HYDROCHLORIDE
     Indication: ATTENTION DEFICIT/HYPERACTIVITY DISORDER
     Dosage: 2 DF, QD
     Route: 048

REACTIONS (4)
  - Disturbance in attention [Not Recovered/Not Resolved]
  - Drug dependence [Unknown]
  - Crying [Not Recovered/Not Resolved]
  - Agitation [Recovering/Resolving]
